FAERS Safety Report 11424369 (Version 1)
Quarter: 2015Q3

REPORT INFORMATION
  Report Type: Spontaneous
  Country: US (occurrence: US)
  Receive Date: 20150827
  Receipt Date: 20150827
  Transmission Date: 20151125
  Serious: Yes (Other)
  Sender: FDA-Public Use
  Company Number: US-PFIZER INC-2015281983

PATIENT
  Age: 78 Year
  Sex: Female
  Weight: 59 kg

DRUGS (14)
  1. ZETIA [Concomitant]
     Active Substance: EZETIMIBE
     Indication: BLOOD CHOLESTEROL ABNORMAL
     Dosage: 10 MG, 1X/DAY, AT BEDTIME
  2. ATORVASTATIN [Concomitant]
     Active Substance: ATORVASTATIN
     Indication: BLOOD CHOLESTEROL ABNORMAL
     Dosage: 20 MG, 1X/DAY, AT BEDTIME
  3. FAMOTIDINE. [Concomitant]
     Active Substance: FAMOTIDINE
     Indication: GASTRIC DISORDER
     Dosage: 20 MG, UNK
  4. VOLTAREN [Concomitant]
     Active Substance: DICLOFENAC SODIUM
     Dosage: UNK, 4X/DAY, RUBS ON LEFT ANKLE, AS AN NSAID
  5. VITAMIN D [Concomitant]
     Active Substance: CHOLECALCIFEROL
  6. LYRICA [Suspect]
     Active Substance: PREGABALIN
     Indication: OSTEOARTHRITIS
     Dosage: 75 MG, 2X/DAY
     Route: 048
     Dates: start: 201505
  7. LYRICA [Suspect]
     Active Substance: PREGABALIN
     Indication: SPINAL CORD NEOPLASM
  8. LYRICA [Suspect]
     Active Substance: PREGABALIN
     Indication: SPONDYLITIC MYELOPATHY
  9. LYRICA [Suspect]
     Active Substance: PREGABALIN
     Indication: OSTEOPOROSIS
     Dosage: 50 MG, 2X/DAY
     Route: 048
     Dates: end: 201508
  10. ASPIRIN. [Concomitant]
     Active Substance: ASPIRIN
     Indication: COAGULOPATHY
     Dosage: 81 MG, UNK
  11. ACETAMINOPHEN. [Concomitant]
     Active Substance: ACETAMINOPHEN
     Indication: PAIN
     Dosage: 600 MG, UNK, TAKES IT SOMETIMES WHEN SHE GOES TO BED
  12. TYLENOL [Concomitant]
     Active Substance: ACETAMINOPHEN
     Indication: PAIN
     Dosage: 600 MG, UNK, TAKES IT SOMETIMES WHEN SHE GOES TO BED
  13. METOPROLOL [Concomitant]
     Active Substance: METOPROLOL
     Indication: CARDIAC DISORDER
     Dosage: 50 MG, 2X/DAY
  14. CLOPIDOGREL [Concomitant]
     Active Substance: CLOPIDOGREL BISULFATE
     Dosage: 75 MG, 4X/DAY

REACTIONS (7)
  - Confusional state [Recovered/Resolved]
  - Foot fracture [Unknown]
  - Product use issue [Unknown]
  - Back disorder [Unknown]
  - Feeling abnormal [Recovered/Resolved]
  - Weight increased [Unknown]
  - Peripheral swelling [Recovered/Resolved]

NARRATIVE: CASE EVENT DATE: 201505
